FAERS Safety Report 21399893 (Version 1)
Quarter: 2022Q4

REPORT INFORMATION
  Report Type: Spontaneous
  Country: US (occurrence: US)
  Receive Date: 20221002
  Receipt Date: 20221002
  Transmission Date: 20230113
  Serious: No
  Sender: FDA-Public Use
  Company Number: None

PATIENT
  Age: 85 Year
  Sex: Female
  Weight: 71.67 kg

DRUGS (8)
  1. VASCEPA [Suspect]
     Active Substance: ICOSAPENT ETHYL
     Indication: Gastric disorder
     Dosage: FREQUENCY TEXT : ONE OR TWO DAILY
     Route: 048
     Dates: start: 2020
  2. GLUCOSAMINE [Concomitant]
     Active Substance: GLUCOSAMINE
     Indication: Product used for unknown indication
  3. CALCIUM\MAGNESIUM [Concomitant]
     Active Substance: CALCIUM\MAGNESIUM
     Indication: Bone disorder
  4. Chicken Collagen Hyaluronic Acid [Concomitant]
     Indication: Product used for unknown indication
  5. Probiotics Acidophilus [Concomitant]
     Indication: Product used for unknown indication
  6. DIETARY SUPPLEMENT\HERBALS\MILK THISTLE [Concomitant]
     Active Substance: DIETARY SUPPLEMENT\HERBALS\MILK THISTLE
     Indication: Product used for unknown indication
  7. Cholesterol red yeast [Concomitant]
     Indication: Blood triglycerides increased
  8. Organic Red Beet Powder [Concomitant]
     Indication: Blood pressure abnormal

REACTIONS (6)
  - Fatigue [Recovered/Resolved]
  - Feeling abnormal [Recovered/Resolved]
  - Therapeutic response unexpected [Recovered/Resolved]
  - Product use in unapproved indication [Recovered/Resolved]
  - Intentional underdose [Recovered/Resolved]
  - Product label issue [Not Recovered/Not Resolved]
